FAERS Safety Report 4313360-7 (Version None)
Quarter: 2004Q1

REPORT INFORMATION
  Report Type: 
  Country: None (occurrence: None)
  Receive Date: 20040304
  Receipt Date: 20040220
  Transmission Date: 20041129
  Serious: Yes (Death)
  Sender: FDA-Public Use
  Company Number: US-JNJFOC-20040204195

PATIENT
  Age: 38 Year
  Sex: Male

DRUGS (1)
  1. DURAGESIC [Suspect]
     Indication: DRUG USE FOR UNKNOWN INDICATION
     Dosage: 75 UG/HR, TRANSDERMAL
     Route: 062

REACTIONS (3)
  - DRUG LEVEL DECREASED [None]
  - ROAD TRAFFIC ACCIDENT [None]
  - SOMNOLENCE [None]
